FAERS Safety Report 16674039 (Version 1)
Quarter: 2019Q3

REPORT INFORMATION
  Report Type: Spontaneous
  Country: US (occurrence: US)
  Receive Date: 20190806
  Receipt Date: 20190806
  Transmission Date: 20191004
  Serious: No
  Sender: FDA-Public Use
  Company Number: US-GALDERMA-US19010279

PATIENT
  Age: 11 Year
  Sex: Female

DRUGS (1)
  1. DIFFERIN [Suspect]
     Active Substance: ADAPALENE
     Indication: PRODUCT USE IN UNAPPROVED INDICATION
     Dosage: 0.3%
     Route: 061
     Dates: start: 20190218

REACTIONS (5)
  - Product use issue [Recovered/Resolved]
  - Condition aggravated [Unknown]
  - Skin exfoliation [Unknown]
  - Erythema [Unknown]
  - Skin burning sensation [Unknown]

NARRATIVE: CASE EVENT DATE: 201902
